FAERS Safety Report 23807762 (Version 2)
Quarter: 2024Q2

REPORT INFORMATION
  Report Type: Report from Study
  Country: US (occurrence: None)
  Receive Date: 20240502
  Receipt Date: 20240618
  Transmission Date: 20240717
  Serious: Yes (Other)
  Sender: FDA-Public Use
  Company Number: 2024A098905

PATIENT
  Sex: Female

DRUGS (1)
  1. SAPHNELO [Suspect]
     Active Substance: ANIFROLUMAB\ANIFROLUMAB-FNIA
     Route: 042

REACTIONS (7)
  - Brain injury [Unknown]
  - Systemic lupus erythematosus [Not Recovered/Not Resolved]
  - Malaise [Unknown]
  - Headache [Unknown]
  - Pain [Unknown]
  - Skin disorder [Unknown]
  - Product dose omission issue [Unknown]
